FAERS Safety Report 6203587-1 (Version None)
Quarter: 2009Q2

REPORT INFORMATION
  Report Type: 
  Country: None (occurrence: None)
  Receive Date: 20090501
  Receipt Date: 20080414
  Transmission Date: 20091009
  Serious: Yes (Other)
  Sender: FDA-Public Use
  Company Number: 2008BH003870

PATIENT
  Sex: Male

DRUGS (1)
  1. FACTOR VIII, UNSPECIFIED [Suspect]
     Indication: FACTOR VIII DEFICIENCY
     Dosage: 1 DOSE; EVERY WEEK

REACTIONS (1)
  - FACTOR VIII INHIBITION [None]
